FAERS Safety Report 22631707 (Version 1)
Quarter: 2023Q2

REPORT INFORMATION
  Report Type: Report from Study
  Country: BR (occurrence: BR)
  Receive Date: 20230623
  Receipt Date: 20230623
  Transmission Date: 20230721
  Serious: Yes (Other)
  Sender: FDA-Public Use
  Company Number: BR-Merck Healthcare KGaA-2023455970

PATIENT
  Sex: Female

DRUGS (2)
  1. INTERFERON BETA-1A [Suspect]
     Active Substance: INTERFERON BETA-1A
     Indication: Multiple sclerosis
     Route: 058
  2. INTERFERON BETA-1A [Suspect]
     Active Substance: INTERFERON BETA-1A

REACTIONS (2)
  - Intervertebral discitis [Recovering/Resolving]
  - Intervertebral disc protrusion [Recovering/Resolving]
